FAERS Safety Report 8740679 (Version 2)
Quarter: 2012Q4

REPORT INFORMATION
  Report Type: 
  Country: US (occurrence: US)
  Receive Date: 20120823
  Receipt Date: 20121120
  Transmission Date: 20130627
  Serious: Yes (Other)
  Sender: FDA-Public Use
  Company Number: US-RB-043469-12

PATIENT
  Age: 72 Year
  Sex: Female

DRUGS (3)
  1. SUBOXONE TABLETS [Suspect]
     Indication: PAIN
     Route: 060
     Dates: start: 201206
  2. SUBOXONE TABLETS [Suspect]
     Indication: DRUG DEPENDENCE
     Route: 060
     Dates: start: 201208
  3. DICLOFENAC [Concomitant]
     Indication: PRODUCT USED FOR UNKNOWN INDICATION
     Dosage: Dosing details unknown
     Route: 065

REACTIONS (5)
  - Suicidal ideation [Recovered/Resolved]
  - Mood swings [Recovered/Resolved]
  - Anger [Recovered/Resolved]
  - Off label use [Recovered/Resolved]
  - Oedema peripheral [Recovered/Resolved]
